FAERS Safety Report 18277991 (Version 1)
Quarter: 2020Q3

REPORT INFORMATION
  Report Type: Spontaneous
  Country: SE (occurrence: SE)
  Receive Date: 20200917
  Receipt Date: 20200917
  Transmission Date: 20201103
  Serious: Yes (Other)
  Sender: FDA-Public Use
  Company Number: SE-MYLANLABS-2020M1078385

PATIENT
  Sex: Female

DRUGS (1)
  1. LERGIGAN (PROMETHAZINE) [Suspect]
     Active Substance: PROMETHAZINE HYDROCHLORIDE
     Indication: SLEEP DISORDER
     Dosage: 1/2 TABLETT
     Dates: end: 20200813

REACTIONS (1)
  - Constipation [Unknown]
